FAERS Safety Report 8595107-1 (Version None)
Quarter: 2012Q3

REPORT INFORMATION
  Report Type: 
  Country: None (occurrence: None)
  Receive Date: 20120807
  Receipt Date: 20120807
  Transmission Date: 20120928
  Serious: Yes (Other)
  Sender: FDA-Public Use
  Company Number: None

PATIENT
  Age: 81 Year
  Sex: Female
  Weight: 72.5755 kg

DRUGS (1)
  1. PRAMIPEXOLE DIHYCHLORIDE [Suspect]
     Indication: RESTLESS LEGS SYNDROME
     Dosage: 1 TABLET DAILY, BEDTIME
     Dates: start: 20110726

REACTIONS (6)
  - RESTLESS LEGS SYNDROME [None]
  - DYSKINESIA [None]
  - PRODUCT FORMULATION ISSUE [None]
  - DRUG INEFFECTIVE [None]
  - GASTROOESOPHAGEAL REFLUX DISEASE [None]
  - PRODUCT SUBSTITUTION ISSUE [None]
